FAERS Safety Report 9530954 (Version 2)
Quarter: 2013Q3

REPORT INFORMATION
  Report Type: Spontaneous
  Country: CO (occurrence: CO)
  Receive Date: 20130918
  Receipt Date: 20130924
  Transmission Date: 20140515
  Serious: Yes (Other)
  Sender: FDA-Public Use
  Company Number: CO-UCBSA-097807

PATIENT
  Age: 34 Year
  Sex: Female
  Weight: 90 kg

DRUGS (3)
  1. KEPPRA XR [Suspect]
     Indication: EPILEPSY
     Dosage: EXTENDED RELEASE
     Route: 048
     Dates: start: 20130830, end: 20130831
  2. TRILEPTAL [Concomitant]
     Indication: EPILEPSY
  3. URBADAN [Concomitant]
     Indication: EPILEPSY

REACTIONS (4)
  - Hypotonia [Recovering/Resolving]
  - Dysarthria [Recovering/Resolving]
  - Expired drug administered [Unknown]
  - Inappropriate schedule of drug administration [Unknown]
